FAERS Safety Report 4612073-1 (Version None)
Quarter: 2005Q2

REPORT INFORMATION
  Report Type: 
  Country: None (occurrence: None)
  Receive Date: 20050308
  Receipt Date: 20041229
  Transmission Date: 20051028
  Serious: Yes (Other)
  Sender: FDA-Public Use
  Company Number: 2004UW26238

PATIENT
  Age: 51 Year
  Sex: Male
  Weight: 122.01 kg

DRUGS (4)
  1. CRESTOR [Suspect]
     Indication: BLOOD CHOLESTEROL INCREASED
     Dosage: 10 MG PO
     Route: 048
     Dates: start: 20041228
  2. ZYPREXA [Concomitant]
  3. ALPRAZOLAM [Concomitant]
  4. ATENOLOL [Concomitant]

REACTIONS (2)
  - DYSURIA [None]
  - POLLAKIURIA [None]
